FAERS Safety Report 7113126-9 (Version None)
Quarter: 2010Q4

REPORT INFORMATION
  Report Type: 
  Country: None (occurrence: None)
  Receive Date: 20101119
  Receipt Date: 20101118
  Transmission Date: 20110411
  Serious: Yes (Other)
  Sender: FDA-Public Use
  Company Number: DK-ABBOTT-10P-044-0662102-00

PATIENT
  Sex: Female
  Weight: 62 kg

DRUGS (9)
  1. HUMIRA [Suspect]
     Indication: PSORIATIC ARTHROPATHY
     Dates: start: 20100401
  2. HUMIRA [Suspect]
     Dates: start: 20100801
  3. HUMIRA [Suspect]
  4. HUMIRA [Suspect]
     Dates: start: 20101007
  5. HUMIRA [Suspect]
     Dates: start: 20101101
  6. DOLOL [Concomitant]
     Indication: ARTHRALGIA
  7. IBUPROFEN [Concomitant]
     Indication: ARTHRALGIA
  8. CONTALGIN [Concomitant]
     Indication: ARTHRALGIA
  9. METHOTREXATE [Concomitant]
     Indication: PSORIASIS
     Dates: start: 20101007

REACTIONS (9)
  - BLOOD URINE PRESENT [None]
  - FATIGUE [None]
  - HEADACHE [None]
  - INFECTION [None]
  - MALAISE [None]
  - NAUSEA [None]
  - PHARYNGEAL INFLAMMATION [None]
  - PYREXIA [None]
  - VOMITING [None]
